APPROVED DRUG PRODUCT: AVITA
Active Ingredient: TRETINOIN
Strength: 0.025%
Dosage Form/Route: GEL;TOPICAL
Application: N020400 | Product #001
Applicant: RISING PHARMA HOLDINGS INC
Approved: Jan 29, 1998 | RLD: No | RS: No | Type: DISCN